FAERS Safety Report 12552824 (Version 1)
Quarter: 2016Q3

REPORT INFORMATION
  Report Type: Report from Study
  Country: US (occurrence: US)
  Receive Date: 20160713
  Receipt Date: 20160713
  Transmission Date: 20161109
  Serious: Yes (Hospitalization, Other)
  Sender: FDA-Public Use
  Company Number: PHEH2016US017086

PATIENT
  Age: 43 Year
  Sex: Female

DRUGS (1)
  1. GILENYA [Suspect]
     Active Substance: FINGOLIMOD HYDROCHLORIDE
     Indication: RELAPSING-REMITTING MULTIPLE SCLEROSIS
     Dosage: 0.5 MG, QD
     Route: 048
     Dates: start: 20150608, end: 201506

REACTIONS (5)
  - Pneumonia aspiration [Unknown]
  - Pharyngitis streptococcal [Unknown]
  - Pneumonia [Unknown]
  - Epiglottis ulcer [Unknown]
  - Tuberculosis [Unknown]

NARRATIVE: CASE EVENT DATE: 20150608
